FAERS Safety Report 13804186 (Version 3)
Quarter: 2017Q3

REPORT INFORMATION
  Report Type: Report from Study
  Country: GB (occurrence: GB)
  Receive Date: 20170728
  Receipt Date: 20170928
  Transmission Date: 20171127
  Serious: Yes (Other)
  Sender: FDA-Public Use
  Company Number: GB-ROCHE-1967665

PATIENT
  Age: 62 Year
  Sex: Female
  Weight: 88.9 kg

DRUGS (5)
  1. PARACETAMOL [Concomitant]
     Active Substance: ACETAMINOPHEN
     Indication: PAIN
     Route: 065
     Dates: start: 201701
  2. CISPLATIN. [Suspect]
     Active Substance: CISPLATIN
     Indication: NON-SMALL CELL LUNG CANCER STAGE IV
     Dosage: DATE OF MOST RECENT DOSE OF CISPLATIN (110 MG) PRIOR TO ADVERSE EVENT ONSET: 12/JUN/2017
     Route: 042
     Dates: start: 20170419
  3. PEMETREXED. [Suspect]
     Active Substance: PEMETREXED
     Indication: NON-SMALL CELL LUNG CANCER STAGE IV
     Dosage: DATE OF MOST RECENT DOSE OF PEMETREXED (712.5 MG) PRIOR TO ADVERSE EVENT ONSET: 12/JUN/2017
     Route: 042
     Dates: start: 20170419
  4. ATEZOLIZUMAB. [Suspect]
     Active Substance: ATEZOLIZUMAB
     Indication: NON-SMALL CELL LUNG CANCER STAGE IV
     Dosage: DATE OF MOST RECENT DOSE OF ATEZOLIZUMAB PRIOR TO ADVERSE EVENT ONSET: 12/JUN/2017
     Route: 042
     Dates: start: 20170419
  5. TRAMADOL. [Concomitant]
     Active Substance: TRAMADOL
     Indication: PAIN
     Route: 065
     Dates: start: 201701

REACTIONS (1)
  - Autoimmune nephritis [Recovered/Resolved with Sequelae]

NARRATIVE: CASE EVENT DATE: 20170707
